FAERS Safety Report 12187941 (Version 1)
Quarter: 2016Q1

REPORT INFORMATION
  Report Type: Spontaneous
  Country: FR (occurrence: FR)
  Receive Date: 20160317
  Receipt Date: 20160317
  Transmission Date: 20160526
  Serious: Yes (Hospitalization, Other)
  Sender: FDA-Public Use
  Company Number: FR-GE HEALTHCARE MEDICAL DIAGNOSTICS-VISP-PR-1603S-0135

PATIENT
  Age: 69 Year
  Sex: Male

DRUGS (11)
  1. CETIRIZINE [Suspect]
     Active Substance: CETIRIZINE HYDROCHLORIDE
     Indication: ALLERGY PROPHYLAXIS
     Route: 048
  2. NOVONORM [Concomitant]
     Active Substance: REPAGLINIDE
  3. VISIPAQUE [Suspect]
     Active Substance: IODIXANOL
     Indication: DIAGNOSTIC PROCEDURE
  4. DUROGESIC [Concomitant]
     Active Substance: FENTANYL
  5. PYOSTACINE [Suspect]
     Active Substance: PRISTINAMYCIN
     Indication: PNEUMONIA
     Route: 048
     Dates: start: 20160228, end: 20160229
  6. LAROXYL [Concomitant]
     Active Substance: AMITRIPTYLINE
  7. CALCIPARINE [Suspect]
     Active Substance: HEPARIN CALCIUM
     Route: 058
     Dates: start: 20160227
  8. ETOPOSIDE. [Suspect]
     Active Substance: ETOPOSIDE
     Indication: BLADDER CANCER
     Route: 042
     Dates: end: 20160215
  9. LYRICA [Concomitant]
     Active Substance: PREGABALIN
  10. VISIPAQUE [Suspect]
     Active Substance: IODIXANOL
     Indication: PULMONARY EMBOLISM
     Dosage: DOSE NOT REPORTED
     Route: 042
     Dates: start: 20160228, end: 20160228
  11. CARBOPLATINE [Suspect]
     Active Substance: CARBOPLATIN
     Indication: BLADDER CANCER
     Route: 042
     Dates: end: 20160215

REACTIONS (1)
  - Dermatitis exfoliative [Recovering/Resolving]

NARRATIVE: CASE EVENT DATE: 20160228
